FAERS Safety Report 11130806 (Version 1)
Quarter: 2015Q2

REPORT INFORMATION
  Report Type: Spontaneous
  Country: US (occurrence: None)
  Receive Date: 20150520
  Receipt Date: 20150520
  Transmission Date: 20150821
  Serious: Yes (Other)
  Sender: FDA-Public Use
  Company Number: US-H14001-15-00764

PATIENT
  Age: 60 Year
  Sex: Male

DRUGS (1)
  1. REGLAN [Suspect]
     Active Substance: METOCLOPRAMIDE HYDROCHLORIDE
     Indication: IMPAIRED GASTRIC EMPTYING
     Dates: start: 2015, end: 2015

REACTIONS (1)
  - Delirium [None]

NARRATIVE: CASE EVENT DATE: 20150203
